FAERS Safety Report 23343333 (Version 1)
Quarter: 2023Q4

REPORT INFORMATION
  Report Type: Spontaneous
  Country: FR (occurrence: FR)
  Receive Date: 20231227
  Receipt Date: 20231227
  Transmission Date: 20240109
  Serious: Yes (Other)
  Sender: FDA-Public Use
  Company Number: FR-BEH-2023166841

PATIENT
  Age: 21 Year
  Sex: Female

DRUGS (2)
  1. RHOPHYLAC [Suspect]
     Active Substance: HUMAN RHO(D) IMMUNE GLOBULIN
     Indication: Prophylaxis
     Dosage: UNK
     Route: 042
     Dates: start: 20231214, end: 20231214
  2. RHOPHYLAC [Suspect]
     Active Substance: HUMAN RHO(D) IMMUNE GLOBULIN
     Indication: Prophylaxis
     Dosage: UNK
     Route: 042
     Dates: start: 20231214, end: 20231214

REACTIONS (4)
  - Vein rupture [Unknown]
  - Maternal exposure during pregnancy [Unknown]
  - No adverse event [Unknown]
  - Incorrect dose administered [Unknown]

NARRATIVE: CASE EVENT DATE: 20231214
